FAERS Safety Report 6956648-3 (Version None)
Quarter: 2010Q3

REPORT INFORMATION
  Report Type: 
  Country: None (occurrence: None)
  Receive Date: 20100830
  Receipt Date: 20100826
  Transmission Date: 20110219
  Serious: No
  Sender: FDA-Public Use
  Company Number: US-PFIZER INC-2010087101

PATIENT
  Sex: Female

DRUGS (2)
  1. PROCARDIA [Suspect]
     Indication: RAYNAUD'S PHENOMENON
     Dosage: UNK
  2. VIAGRA [Concomitant]
     Indication: RAYNAUD'S PHENOMENON

REACTIONS (1)
  - DRUG INEFFECTIVE FOR UNAPPROVED INDICATION [None]
